FAERS Safety Report 5619744-9 (Version None)
Quarter: 2008Q1

REPORT INFORMATION
  Report Type: 
  Country: None (occurrence: None)
  Receive Date: 20080208
  Receipt Date: 20071217
  Transmission Date: 20080703
  Serious: No
  Sender: FDA-Public Use
  Company Number: A0697005A

PATIENT
  Age: 18 Year
  Sex: Female
  Weight: 59.1 kg

DRUGS (1)
  1. ALTABAX [Suspect]
     Dosage: 1APP TWICE PER DAY
     Route: 061
     Dates: start: 20071115, end: 20071117

REACTIONS (1)
  - APPLICATION SITE PAIN [None]
